FAERS Safety Report 5444357-1 (Version None)
Quarter: 2007Q3

REPORT INFORMATION
  Report Type: 
  Country: None (occurrence: None)
  Receive Date: 20070904
  Receipt Date: 20070904
  Transmission Date: 20080115
  Serious: Yes (Hospitalization)
  Sender: FDA-Public Use
  Company Number: None

PATIENT
  Age: 3 Year
  Sex: Male
  Weight: 17.7 kg

DRUGS (1)
  1. ONCASPAR [Suspect]
     Dosage: 1875 INTERNATIONAL UNITS IM
     Route: 030

REACTIONS (12)
  - BLOOD PH DECREASED [None]
  - BLOOD PRESSURE DECREASED [None]
  - CARDIO-RESPIRATORY ARREST [None]
  - DYSPNOEA [None]
  - EYE SWELLING [None]
  - FACE OEDEMA [None]
  - HEART RATE INCREASED [None]
  - HYPOTENSION [None]
  - LIP SWELLING [None]
  - OXYGEN SATURATION DECREASED [None]
  - PULSE ABNORMAL [None]
  - WHEEZING [None]
